FAERS Safety Report 23484700 (Version 8)
Quarter: 2024Q4

REPORT INFORMATION
  Report Type: Spontaneous
  Country: KR (occurrence: KR)
  Receive Date: 20240206
  Receipt Date: 20241021
  Transmission Date: 20250114
  Serious: Yes (Hospitalization)
  Sender: AMGEN
  Company Number: KR-AMGEN-USASP2024017934

PATIENT
  Age: 79 Year
  Sex: Male
  Weight: 51.3 kg

DRUGS (5)
  1. XGEVA [Suspect]
     Active Substance: DENOSUMAB
     Indication: Osteoporosis prophylaxis
     Dosage: 120 MILLIGRAM, QMO (INJECTION) (INTRACAVERNOUS USE)
     Route: 065
     Dates: start: 20210513, end: 20231206
  2. TALAZOPARIB [Suspect]
     Active Substance: TALAZOPARIB
     Indication: Prostate cancer metastatic
     Dosage: UNK UNK, QD
     Route: 048
     Dates: start: 20201208
  3. ENZALUTAMIDE [Suspect]
     Active Substance: ENZALUTAMIDE
     Indication: Prostate cancer metastatic
     Dosage: 160 MILLIGRAM, QD
     Route: 048
     Dates: start: 20201208
  4. CALCIUM CARBONATE\CHOLECALCIFEROL [Concomitant]
     Active Substance: CALCIUM CARBONATE\CHOLECALCIFEROL
     Indication: Osteoporosis prophylaxis
     Dosage: UNK
     Route: 048
     Dates: start: 20210513
  5. Feroba you sr [Concomitant]
     Indication: Prophylaxis
     Dosage: UNK
     Route: 048
     Dates: start: 20201221

REACTIONS (5)
  - Bone swelling [Recovering/Resolving]
  - Gingival pain [Recovering/Resolving]
  - Pain in jaw [Recovering/Resolving]
  - Off label use [Unknown]
  - Tooth extraction [Recovered/Resolved]

NARRATIVE: CASE EVENT DATE: 20210513
